FAERS Safety Report 5142856-3 (Version None)
Quarter: 2006Q4

REPORT INFORMATION
  Report Type: 
  Country: None (occurrence: None)
  Receive Date: 20061030
  Receipt Date: 20061017
  Transmission Date: 20070319
  Serious: Yes (Life-Threatening, Hospitalization)
  Sender: FDA-Public Use
  Company Number: 2006AP000857

PATIENT
  Age: 30 Year
  Sex: Female

DRUGS (9)
  1. FLUOXETINE HYDROCHLORIDE [Suspect]
     Indication: DEPRESSION
  2. DULOXETINE HYDROCHLORIDE [Suspect]
     Indication: DEPRESSION
  3. AZITHROMYCIN [Concomitant]
  4. CYANOCOBALAMIN [Concomitant]
  5. MULTIVITAMIN [Concomitant]
  6. GARLIC             (GARLIC) [Concomitant]
  7. METHYLPREDNISOLONE [Concomitant]
  8. PREDNISONE TAB [Concomitant]
  9. GABAPENTIN [Concomitant]

REACTIONS (5)
  - EOSINOPHILIC PNEUMONIA ACUTE [None]
  - GENERAL PHYSICAL HEALTH DETERIORATION [None]
  - HEART RATE INCREASED [None]
  - RESPIRATORY FAILURE [None]
  - SHOCK [None]
